FAERS Safety Report 7441326-7 (Version None)
Quarter: 2011Q2

REPORT INFORMATION
  Report Type: 
  Country: None (occurrence: None)
  Receive Date: 20110428
  Receipt Date: 20110418
  Transmission Date: 20111010
  Serious: Yes (Other)
  Sender: FDA-Public Use
  Company Number: US-ASTRAZENECA-2007UW25650

PATIENT
  Age: 12443 Day
  Sex: Female
  Weight: 93 kg

DRUGS (14)
  1. EFFEXOR XR [Concomitant]
     Dates: start: 20041004
  2. DIFLUCAN [Concomitant]
     Dates: start: 20040413
  3. FLEXERIL [Concomitant]
     Dates: start: 20041004
  4. SEROQUEL [Suspect]
     Indication: MIGRAINE
     Dosage: 100 MG TO 200 MG
     Route: 048
     Dates: start: 20040407, end: 20060401
  5. CEPHALEXIN [Concomitant]
     Dates: start: 20040406
  6. SEROQUEL [Suspect]
     Indication: PANIC ATTACK
     Dosage: 100 MG TO 200 MG
     Route: 048
     Dates: start: 20040407, end: 20060401
  7. COPAXONE [Concomitant]
     Dosage: 20MG/ML
     Dates: start: 20040410
  8. ZONEGRAN [Concomitant]
     Dates: start: 20040406
  9. XENICAL [Concomitant]
     Indication: WEIGHT CONTROL
     Dates: start: 20000101
  10. METHADONE [Concomitant]
     Indication: PAIN
     Dates: start: 20070101, end: 20080101
  11. ABILIFY [Concomitant]
     Dates: start: 20050101
  12. LORTAB [Concomitant]
     Dosage: 5/500 TO 7.5/500 PO PRN.
     Dates: start: 20041004
  13. PREDNISONE [Concomitant]
     Dates: start: 20040101
  14. GEODON [Concomitant]
     Dates: start: 20060101

REACTIONS (2)
  - DIABETIC NEUROPATHY [None]
  - TYPE 2 DIABETES MELLITUS [None]
